FAERS Safety Report 5214763-9 (Version None)
Quarter: 2006Q4

REPORT INFORMATION
  Report Type: 
  Country: None (occurrence: None)
  Receive Date: 20061113
  Receipt Date: 20060914
  Transmission Date: 20070319
  Serious: Yes (Hospitalization)
  Sender: FDA-Public Use
  Company Number: US-JNJFOC-20060802597

PATIENT
  Age: 63 Year
  Sex: Male
  Weight: 82 kg

DRUGS (21)
  1. LEVAQUIN [Suspect]
     Indication: PNEUMONIA
     Dosage: 750 MG, 1 IN 1 DAY, INTRAVENOUS
     Route: 042
     Dates: start: 20060711, end: 20060714
  2. FLONASE [Suspect]
     Indication: DRUG USE FOR UNKNOWN INDICATION
     Dates: start: 20060711
  3. GENTAMICIN [Suspect]
     Indication: PNEUMONIA
     Dosage: 160 MG, 1 IN 1 DAY, INTRAVENOUS
     Route: 042
     Dates: start: 20060711, end: 20060714
  4. CLINDAMYCIN [Suspect]
     Indication: PNEUMONIA
     Dosage: 600 MG, 3 IN 1 DAY, INTRAVENOUS
     Route: 042
     Dates: start: 20060711, end: 20060714
  5. SIMVASTATIN [Concomitant]
  6. WARFARIN SODIUM [Concomitant]
  7. PROSTAGLANDIN (DINOPROSTONE) [Concomitant]
  8. ALLOPURINOL [Concomitant]
  9. FUROSEMIDE [Concomitant]
  10. GLIPIZIDE [Concomitant]
  11. VICODIN [Concomitant]
  12. HUMAN INTERMEDIATE LONG-LASTING INSULIN (NOVOLIN 20;80) [Concomitant]
  13. SALBUTAMOL SULPHATE (SALBUTAMOL) [Concomitant]
  14. LEVOTHYROXINE SODIUM [Concomitant]
  15. LISINOPRIL [Concomitant]
  16. METFORMIN HCL [Concomitant]
  17. NICOTINIC ACID [Concomitant]
  18. OMEPRAZOLE [Concomitant]
  19. POTASSIUM CHLORIDE [Concomitant]
  20. AVANDIA [Concomitant]
  21. VIAGRA [Concomitant]

REACTIONS (1)
  - RASH [None]
